FAERS Safety Report 18293946 (Version 1)
Quarter: 2020Q3

REPORT INFORMATION
  Report Type: Spontaneous
  Country: GB (occurrence: GB)
  Receive Date: 20200922
  Receipt Date: 20200922
  Transmission Date: 20201103
  Serious: Yes (Hospitalization)
  Sender: FDA-Public Use
  Company Number: GB-ACCORD-202024

PATIENT
  Age: 57 Year
  Sex: Female
  Weight: 88.8 kg

DRUGS (19)
  1. DICLOFENAC [Concomitant]
     Active Substance: DICLOFENAC
  2. CITALOPRAM [Concomitant]
     Active Substance: CITALOPRAM HYDROBROMIDE
     Indication: MENOPAUSAL SYMPTOMS
  3. REMIFENTANIL [Concomitant]
     Active Substance: REMIFENTANIL
     Indication: ANAESTHESIA
  4. HYDROQUINONE. [Concomitant]
     Active Substance: HYDROQUINONE
     Indication: PIGMENTATION DISORDER
     Route: 061
  5. ONDANSETRON [Suspect]
     Active Substance: ONDANSETRON
     Indication: PROPHYLAXIS OF NAUSEA AND VOMITING
     Route: 042
     Dates: start: 20200826, end: 20200826
  6. MIDAZOLAM. [Concomitant]
     Active Substance: MIDAZOLAM
  7. GENTAMICIN. [Concomitant]
     Active Substance: GENTAMICIN
  8. PARACETAMOL [Concomitant]
     Active Substance: ACETAMINOPHEN
  9. ATORVASTATIN [Concomitant]
     Active Substance: ATORVASTATIN
     Indication: BLOOD CHOLESTEROL INCREASED
  10. FLUCLOXACILLIN [Concomitant]
     Active Substance: FLUCLOXACILLIN
  11. SALBUTAMOL [Concomitant]
     Active Substance: ALBUTEROL
     Indication: ASTHMA
  12. PROPOFOL. [Concomitant]
     Active Substance: PROPOFOL
     Indication: INDUCTION OF ANAESTHESIA
  13. FENTANYL. [Concomitant]
     Active Substance: FENTANYL
  14. OXYCODONE [Concomitant]
     Active Substance: OXYCODONE
  15. ONDANSETRON [Concomitant]
     Active Substance: ONDANSETRON
  16. ASCORBIC ACID. [Concomitant]
     Active Substance: ASCORBIC ACID
  17. DEXAMETHASONE. [Concomitant]
     Active Substance: DEXAMETHASONE
  18. TRETINOIN. [Concomitant]
     Active Substance: TRETINOIN
     Indication: PIGMENTATION DISORDER
     Route: 061
  19. FOSTAIR [Concomitant]
     Active Substance: BECLOMETHASONE\FORMOTEROL
     Indication: ASTHMA

REACTIONS (1)
  - Dystonia [Recovered/Resolved]

NARRATIVE: CASE EVENT DATE: 20200826
